FAERS Safety Report 16426406 (Version 1)
Quarter: 2019Q2

REPORT INFORMATION
  Report Type: Spontaneous
  Country: NO (occurrence: NO)
  Receive Date: 20190613
  Receipt Date: 20190613
  Transmission Date: 20190711
  Serious: Yes (Disabling)
  Sender: FDA-Public Use
  Company Number: PHHY2019NO134440

PATIENT
  Age: 50 Year
  Sex: Male
  Weight: 110 kg

DRUGS (3)
  1. TEGRETOL [Suspect]
     Active Substance: CARBAMAZEPINE
     Indication: PRODUCT USED FOR UNKNOWN INDICATION
     Dosage: 200 MG, Q12H (KARBAMAZEPIN SVEKKER DE ANDRE MEDISINENE)
     Route: 048
     Dates: start: 19910303
  2. SOBRIL [Interacting]
     Active Substance: OXAZEPAM
     Indication: PRODUCT USED FOR UNKNOWN INDICATION
     Dosage: 15 MG, Q12H (1 TABLET MORNING AND 1 TABLET EVENING)
     Route: 048
     Dates: start: 20170505
  3. OLANZAPINE. [Interacting]
     Active Substance: OLANZAPINE
     Indication: PSYCHOTIC DISORDER
     Dosage: 5 MG, Q2H
     Route: 048
     Dates: start: 20010101

REACTIONS (8)
  - Restlessness [Unknown]
  - Paroxysmal choreoathetosis [Unknown]
  - Somnolence [Not Recovered/Not Resolved]
  - Inhibitory drug interaction [Not Recovered/Not Resolved]
  - Schizophrenia [Unknown]
  - Asocial behaviour [Not Recovered/Not Resolved]
  - Anxiety [Not Recovered/Not Resolved]
  - Irritability [Not Recovered/Not Resolved]
